FAERS Safety Report 5881031-1 (Version None)
Quarter: 2008Q3

REPORT INFORMATION
  Report Type: 
  Country: None (occurrence: None)
  Receive Date: 20080912
  Receipt Date: 20080620
  Transmission Date: 20090109
  Serious: No
  Sender: FDA-Public Use
  Company Number: US-ABBOTT-08P-163-0457850-00

PATIENT
  Sex: Female
  Weight: 65.83 kg

DRUGS (13)
  1. HUMIRA [Suspect]
     Indication: CROHN'S DISEASE
     Route: 050
     Dates: start: 20080101, end: 20080618
  2. LORAZEPAM [Concomitant]
     Indication: ANXIETY
     Route: 048
  3. CLONAZEPAM [Concomitant]
     Indication: ANXIETY
     Dosage: 2-4 MILLIGRAMS 1-2 TABS DAILY AT BED TIME
     Route: 048
  4. BUSPIRONE HYDROCHLORIDE [Concomitant]
     Indication: ANXIETY
     Route: 048
  5. PHENERGAN HCL [Concomitant]
     Indication: NAUSEA
     Route: 048
  6. PHENERGAN HCL [Concomitant]
     Indication: VOMITING
  7. LOMOTIL [Concomitant]
     Indication: DIARRHOEA
     Dosage: 4 TAB IN THE MORNING AND 1 TAB AT BED TIME
     Route: 048
  8. METAXALONE [Concomitant]
     Indication: PAIN
     Route: 048
  9. PAPAVER SOMNIFERUM TINCTURE [Concomitant]
     Indication: PAIN
     Route: 048
  10. BIRTH CONTROL [Concomitant]
     Indication: CONTRACEPTION
     Route: 048
  11. TYLENOL MAXIMUM STRENGTH [Concomitant]
     Indication: PREMEDICATION
     Route: 048
  12. DIPHENHYDRAMINE HYDROCHLORIDE [Concomitant]
     Indication: PREMEDICATION
     Route: 048
  13. FENTANYL [Concomitant]
     Indication: PAIN
     Route: 062
     Dates: start: 20080301

REACTIONS (6)
  - ABDOMINAL PAIN [None]
  - COUGH [None]
  - INJECTION SITE IRRITATION [None]
  - NASOPHARYNGITIS [None]
  - NAUSEA [None]
  - PARAESTHESIA [None]
